FAERS Safety Report 23424521 (Version 1)
Quarter: 2024Q1

REPORT INFORMATION
  Report Type: Spontaneous
  Country: ES (occurrence: ES)
  Receive Date: 20240120
  Receipt Date: 20240120
  Transmission Date: 20240410
  Serious: Yes (Other)
  Sender: FDA-Public Use
  Company Number: ES-Accord-401402

PATIENT
  Sex: Male

DRUGS (1)
  1. BENDAMUSTINE [Suspect]
     Active Substance: BENDAMUSTINE
     Indication: Chronic lymphocytic leukaemia

REACTIONS (3)
  - Skin lesion [Unknown]
  - Chronic lymphocytic leukaemia [Unknown]
  - Leukaemia recurrent [Unknown]
